FAERS Safety Report 9174895 (Version 1)
Quarter: 2013Q1

REPORT INFORMATION
  Report Type: Spontaneous
  Country: IT (occurrence: None)
  Receive Date: 20130318
  Receipt Date: 20130318
  Transmission Date: 20140127
  Serious: Yes (Hospitalization, Other)
  Sender: FDA-Public Use
  Company Number: AUR-APL-2013-02152

PATIENT
  Age: 82 Year
  Sex: Female

DRUGS (1)
  1. CITALOPRAM (CITALOPRAM) [Suspect]
     Indication: DEPRESSION
     Dates: start: 20121227, end: 20121228

REACTIONS (5)
  - Nausea [None]
  - Syncope [None]
  - Vomiting [None]
  - Fall [None]
  - Head injury [None]
